FAERS Safety Report 7861802-2 (Version None)
Quarter: 2011Q4

REPORT INFORMATION
  Report Type: 
  Country: None (occurrence: None)
  Receive Date: 20111027
  Receipt Date: 20101117
  Transmission Date: 20120403
  Serious: No
  Sender: FDA-Public Use
  Company Number: US-AMGEN-USASP2010005319

PATIENT
  Age: 57 Year
  Sex: Female

DRUGS (10)
  1. PREDNISONE [Concomitant]
     Dosage: 1 MG, UNK
  2. OMEPRAZOLE [Concomitant]
     Dosage: 40 MG, UNK
  3. CALCIUM +D [Concomitant]
  4. IBUPROFEN [Concomitant]
     Dosage: 200 MG, UNK
  5. DURAGESIC-100 [Concomitant]
  6. METFORMIN HCL [Concomitant]
     Dosage: 500 MG, UNK
  7. FOLIC ACID [Concomitant]
     Dosage: 1 MG, UNK
  8. OMEGA 3                            /00931501/ [Concomitant]
     Dosage: 1000 MG, UNK
  9. ENBREL [Suspect]
     Indication: PRODUCT USED FOR UNKNOWN INDICATION
     Dosage: 50 MG, QWK
  10. ZOLOFT [Concomitant]
     Dosage: 25 MG, UNK

REACTIONS (1)
  - INJECTION SITE PAIN [None]
